FAERS Safety Report 16801608 (Version 1)
Quarter: 2019Q3

REPORT INFORMATION
  Report Type: Report from Study
  Country: JP (occurrence: JP)
  Receive Date: 20190912
  Receipt Date: 20190912
  Transmission Date: 20191005
  Serious: Yes (Hospitalization)
  Sender: FDA-Public Use
  Company Number: JP-BIOGEN-2019BI00686972

PATIENT
  Age: 6 Year
  Sex: Female

DRUGS (10)
  1. MIDAZOLAM [Interacting]
     Active Substance: MIDAZOLAM HYDROCHLORIDE
     Route: 050
     Dates: start: 20180808, end: 20180808
  2. SPINRAZA [Interacting]
     Active Substance: NUSINERSEN
     Route: 050
     Dates: start: 20180606, end: 20180606
  3. SPINRAZA [Interacting]
     Active Substance: NUSINERSEN
     Route: 050
     Dates: start: 20190731, end: 20190731
  4. MIDAZOLAM [Interacting]
     Active Substance: MIDAZOLAM HYDROCHLORIDE
     Route: 050
     Dates: start: 20180606, end: 20180606
  5. SPINRAZA [Suspect]
     Active Substance: NUSINERSEN
     Indication: SPINAL MUSCULAR ATROPHY
     Route: 050
     Dates: start: 20180509, end: 20180509
  6. MIDAZOLAM [Interacting]
     Active Substance: MIDAZOLAM HYDROCHLORIDE
     Route: 050
     Dates: start: 20190130, end: 20190130
  7. SPINRAZA [Interacting]
     Active Substance: NUSINERSEN
     Route: 050
     Dates: start: 20180808, end: 20180808
  8. SPINRAZA [Interacting]
     Active Substance: NUSINERSEN
     Route: 050
     Dates: start: 20190130, end: 20190130
  9. MIDAZOLAM [Interacting]
     Active Substance: MIDAZOLAM HYDROCHLORIDE
     Indication: ANAESTHESIA PROCEDURE
     Route: 050
     Dates: start: 20180509, end: 20180509
  10. MIDAZOLAM [Interacting]
     Active Substance: MIDAZOLAM HYDROCHLORIDE
     Route: 050
     Dates: start: 20190731, end: 20190731

REACTIONS (3)
  - Drug interaction [Unknown]
  - Pneumonia aspiration [Recovered/Resolved]
  - Pyrexia [Recovered/Resolved]

NARRATIVE: CASE EVENT DATE: 20180607
